FAERS Safety Report 13002009 (Version 1)
Quarter: 2016Q4

REPORT INFORMATION
  Report Type: Spontaneous
  Country: PK (occurrence: PK)
  Receive Date: 20161206
  Receipt Date: 20161206
  Transmission Date: 20170207
  Serious: Yes (Other)
  Sender: FDA-Public Use
  Company Number: PK-SA-2016SA209476

PATIENT
  Age: 37 Year
  Sex: Female
  Weight: 58 kg

DRUGS (3)
  1. LANTUS SOLOSTAR [Suspect]
     Active Substance: INSULIN GLARGINE
     Indication: DIABETES MELLITUS
     Dosage: DOSE 10- 20IU
     Route: 058
     Dates: start: 2014
  2. SOLOSTAR [Concomitant]
     Active Substance: DEVICE
     Indication: DIABETES MELLITUS
     Dates: start: 2004
  3. TREVIA [Suspect]
     Active Substance: SITAGLIPTIN PHOSPHATE
     Indication: HYPERGLYCAEMIA
     Route: 065
     Dates: start: 2014

REACTIONS (8)
  - Gestational diabetes [Not Recovered/Not Resolved]
  - Dysuria [Not Recovered/Not Resolved]
  - Thyroid disorder [Unknown]
  - Exposure during pregnancy [Unknown]
  - Hyperglycaemia [Not Recovered/Not Resolved]
  - Nephrolithiasis [Unknown]
  - Vulvovaginal burning sensation [Not Recovered/Not Resolved]
  - Glycosylated haemoglobin increased [Unknown]

NARRATIVE: CASE EVENT DATE: 2014
